FAERS Safety Report 10996311 (Version 1)
Quarter: 2015Q2

REPORT INFORMATION
  Report Type: Report from Study
  Country: US (occurrence: US)
  Receive Date: 20150408
  Receipt Date: 20150408
  Transmission Date: 20150821
  Serious: Yes (Other)
  Sender: FDA-Public Use
  Company Number: US-ROCHE-1360676

PATIENT

DRUGS (2)
  1. BEVACIZUMAB [Suspect]
     Active Substance: BEVACIZUMAB
     Indication: NON-SMALL CELL LUNG CANCER
     Route: 065
  2. IMETELSTAT [Suspect]
     Active Substance: IMETELSTAT
     Indication: NON-SMALL CELL LUNG CANCER
     Dosage: ON DAYS 1 AND 8 EVERY 21 DAYS
     Route: 065

REACTIONS (15)
  - Mental disorder [Unknown]
  - Weight decreased [Unknown]
  - Fatigue [Unknown]
  - Respiratory disorder [Unknown]
  - Anaemia [Unknown]
  - Decreased appetite [Unknown]
  - Neutropenia [Unknown]
  - Infestation [Unknown]
  - Malnutrition [Unknown]
  - Epistaxis [Unknown]
  - Thrombocytopenia [Unknown]
  - Metabolic disorder [Unknown]
  - Nervous system disorder [Unknown]
  - Gastrointestinal disorder [Unknown]
  - Infection [Unknown]
